FAERS Safety Report 8444061 (Version 5)
Quarter: 2012Q4

REPORT INFORMATION
  Report Type: 
  Country: US (occurrence: US)
  Receive Date: 20120306
  Receipt Date: 20120918
  Transmission Date: 20130627
  Serious: Yes (Hospitalization, Other)
  Sender: FDA-Public Use
  Company Number: US-009507513-1203USA00545

PATIENT

DRUGS (11)
  1. FOSAMAX [Suspect]
     Indication: OSTEOPENIA
     Dosage: 10 mg, UNK
     Route: 048
     Dates: start: 199604, end: 200303
  2. FOSAMAX [Suspect]
     Indication: OSTEOPOROSIS
     Dosage: 35 mg, QW
     Route: 048
     Dates: start: 200303, end: 200803
  3. FOSAMAX [Suspect]
     Indication: OSTEOPENIA
     Dosage: 35 mg, UNK
     Route: 048
     Dates: start: 20080426, end: 201001
  4. FOSAMAX [Suspect]
     Indication: OSTEOPOROSIS
  5. ALENDRONATE SODIUM [Suspect]
     Dosage: 35 mg, UNK
     Dates: start: 20080426
  6. CHOLECALCIFEROL [Concomitant]
     Indication: OSTEOPENIA
     Dosage: 400 DF, qd
     Dates: start: 1996
  7. ASCORBIC ACID [Concomitant]
     Dosage: 500 mg, qd
     Dates: start: 1990
  8. MK-9278 [Concomitant]
     Dosage: 1 DF, qd
     Dates: start: 1990
  9. CALCIUM (UNSPECIFIED) [Concomitant]
     Indication: OSTEOPENIA
     Dosage: 600 mg, qd
     Dates: start: 1990
  10. HORMONES (UNSPECIFIED) [Concomitant]
     Dates: start: 1985, end: 1999
  11. SYNTHROID [Concomitant]
     Indication: HYPOTHYROIDISM
     Dates: start: 1968

REACTIONS (58)
  - Femur fracture [Unknown]
  - Renal failure chronic [Unknown]
  - Azotaemia [Recovered/Resolved]
  - Oral candidiasis [Recovered/Resolved]
  - Haemorrhagic anaemia [Recovered/Resolved]
  - Meniscus injury [Unknown]
  - Diarrhoea [Unknown]
  - Vomiting [Unknown]
  - Cataract [Unknown]
  - Tooth disorder [Unknown]
  - Hypersensitivity [Unknown]
  - Hypercholesterolaemia [Unknown]
  - Low turnover osteopathy [Unknown]
  - Adverse event [Unknown]
  - Rotator cuff syndrome [Unknown]
  - Synovial cyst [Unknown]
  - Osteoarthritis [Unknown]
  - Joint dislocation [Unknown]
  - Bursitis [Unknown]
  - Nephropathy [Unknown]
  - Coronary artery disease [Unknown]
  - Increased tendency to bruise [Unknown]
  - Upper-airway cough syndrome [Unknown]
  - Nephrolithiasis [Unknown]
  - Urinary tract infection [Unknown]
  - Haemorrhoids [Unknown]
  - Temperature intolerance [Unknown]
  - Scoliosis [Unknown]
  - Intermittent claudication [Unknown]
  - Epidural lipomatosis [Unknown]
  - Fall [Unknown]
  - Bronchitis chronic [Unknown]
  - Ataxia [Unknown]
  - Head injury [Unknown]
  - Carotid artery stenosis [Unknown]
  - Osteoarthritis [Unknown]
  - Spinal column stenosis [Unknown]
  - Pyelonephritis chronic [Unknown]
  - Insomnia [Unknown]
  - Urinary tract infection [Unknown]
  - Retinal detachment [Unknown]
  - Iron deficiency anaemia [Unknown]
  - Pyelonephritis acute [Unknown]
  - Lumbar radiculopathy [Unknown]
  - Cardiac murmur [Unknown]
  - Helicobacter gastritis [Recovered/Resolved]
  - Irritable bowel syndrome [Unknown]
  - House dust allergy [Unknown]
  - Post-traumatic neck syndrome [Unknown]
  - Radiculopathy [Unknown]
  - Arthropathy [Unknown]
  - Gastrooesophageal reflux disease [Unknown]
  - Pain in extremity [Not Recovered/Not Resolved]
  - Arthralgia [Not Recovered/Not Resolved]
  - Arthralgia [Unknown]
  - Oedema peripheral [Unknown]
  - Rash [Unknown]
  - Pruritus [Unknown]
